FAERS Safety Report 4574421-0 (Version None)
Quarter: 2005Q1

REPORT INFORMATION
  Report Type: 
  Country: None (occurrence: None)
  Receive Date: 20050208
  Receipt Date: 20040826
  Transmission Date: 20050727
  Serious: Yes (Life-Threatening, Other)
  Sender: FDA-Public Use
  Company Number: PHNU2004DE03025

PATIENT
  Age: 30 Year
  Sex: Female

DRUGS (1)
  1. PRAVIDEL [Suspect]
     Indication: GALACTORRHOEA
     Dosage: UNK, UNK
     Dates: start: 20040801

REACTIONS (6)
  - DRUG EXPOSURE DURING PREGNANCY [None]
  - GENITOURINARY TRACT INFECTION [None]
  - MYOCARDIAL INFARCTION [None]
  - NEUROLOGICAL SYMPTOM [None]
  - PLATELET COUNT DECREASED [None]
  - THROMBOTIC THROMBOCYTOPENIC PURPURA [None]
